FAERS Safety Report 14617170 (Version 2)
Quarter: 2018Q1

REPORT INFORMATION
  Report Type: Report from Study
  Country: None (occurrence: LB)
  Receive Date: 20180309
  Receipt Date: 20180325
  Transmission Date: 20180509
  Serious: Yes (Hospitalization)
  Sender: FDA-Public Use
  Company Number: LB-ABBVIE-18S-093-2274981-00

PATIENT
  Age: 47 Year
  Sex: Male
  Weight: 80 kg

DRUGS (5)
  1. PEPTAZOL [Concomitant]
     Active Substance: PANTOPRAZOLE SODIUM
     Indication: PRODUCT USED FOR UNKNOWN INDICATION
  2. EXVIERA [Suspect]
     Active Substance: DASABUVIR
     Indication: ANTIVIRAL PROPHYLAXIS
     Dosage: 1 MORNING/EVENING
     Route: 048
     Dates: start: 20180209, end: 20180222
  3. RIBAVIRIN. [Concomitant]
     Active Substance: RIBAVIRIN
     Indication: ANTIVIRAL PROPHYLAXIS
     Dosage: 3 TABS MORNING AND EVENING
     Route: 048
     Dates: start: 20180209
  4. VIEKIRAX [Suspect]
     Active Substance: OMBITASVIR\PARITAPREVIR\RITONAVIR
     Indication: HEPATITIS C
     Dosage: 2 MORNING
     Route: 048
     Dates: start: 20180209, end: 20180222
  5. INDERAL [Concomitant]
     Active Substance: PROPRANOLOL HYDROCHLORIDE
     Indication: PRODUCT USED FOR UNKNOWN INDICATION

REACTIONS (2)
  - Abdominal abscess [Recovered/Resolved]
  - Retroperitoneal abscess [Unknown]

NARRATIVE: CASE EVENT DATE: 20180222
